FAERS Safety Report 15641674 (Version 1)
Quarter: 2018Q4

REPORT INFORMATION
  Report Type: Spontaneous
  Country: US (occurrence: US)
  Receive Date: 20181121
  Receipt Date: 20181121
  Transmission Date: 20190205
  Serious: No
  Sender: FDA-Public Use
  Company Number: US-ACCORD-064035

PATIENT
  Age: 82 Year
  Sex: Male
  Weight: 54.43 kg

DRUGS (1)
  1. HYDROCHLOROTHIAZIDE ACCORD [Suspect]
     Active Substance: HYDROCHLOROTHIAZIDE
     Indication: PRODUCT USED FOR UNKNOWN INDICATION
     Dosage: STRENGTH: 25 MG
     Route: 048

REACTIONS (4)
  - Drug ineffective [Unknown]
  - Manufacturing materials issue [Unknown]
  - Product substitution issue [Unknown]
  - Peripheral swelling [Unknown]
